FAERS Safety Report 8600614 (Version 2)
Quarter: 2013Q3

REPORT INFORMATION
  Report Type: Report from Study
  Country: MX (occurrence: MX)
  Receive Date: 20120606
  Receipt Date: 20130722
  Transmission Date: 20140515
  Serious: Yes (Other)
  Sender: FDA-Public Use
  Company Number: PHHY2012MX047302

PATIENT
  Age: 66 Year
  Sex: Male

DRUGS (2)
  1. TEGRETOL-XR [Suspect]
     Indication: EPILEPSY
     Dosage: 2 DF, (400 MG) DAILY
     Route: 048
     Dates: start: 201005
  2. TEGRETOL-XR [Suspect]
     Dosage: 3 DF, (200 MG) DAILY

REACTIONS (1)
  - Benign neoplasm of eye [Recovered/Resolved]
